FAERS Safety Report 16339085 (Version 1)
Quarter: 2019Q2

REPORT INFORMATION
  Report Type: Spontaneous
  Country: US (occurrence: US)
  Receive Date: 20190521
  Receipt Date: 20190521
  Transmission Date: 20190711
  Serious: No
  Sender: FDA-Public Use
  Company Number: US-GLAXOSMITHKLINE-US2019085883

PATIENT
  Age: 65 Year
  Sex: Female

DRUGS (1)
  1. FLONASE SENSIMIST ALLERGY RELIEF [Suspect]
     Active Substance: FLUTICASONE FUROATE
     Indication: HYPERSENSITIVITY
     Dosage: I USED 2 SPRAYS ON EACH SIDE
     Route: 045
     Dates: start: 20190512, end: 20190513

REACTIONS (1)
  - Upper-airway cough syndrome [Recovered/Resolved with Sequelae]

NARRATIVE: CASE EVENT DATE: 20190512
